FAERS Safety Report 7676710-X (Version None)
Quarter: 2011Q3

REPORT INFORMATION
  Report Type: 
  Country: None (occurrence: None)
  Receive Date: 20110811
  Receipt Date: 20110802
  Transmission Date: 20111222
  Serious: Yes (Disabling, Other)
  Sender: FDA-Public Use
  Company Number: GB-JNJFOC-20110802667

PATIENT
  Age: 83 Year
  Sex: Female
  Weight: 47 kg

DRUGS (13)
  1. LOPERAMIDE HCL [Suspect]
     Indication: PRODUCT USED FOR UNKNOWN INDICATION
     Route: 065
     Dates: start: 20110725
  2. CETIRIZINE HCL [Concomitant]
     Route: 065
     Dates: start: 20110608, end: 20110708
  3. SYMBICORT [Concomitant]
     Route: 065
     Dates: start: 20110722, end: 20110723
  4. ALBUTEROL [Concomitant]
     Route: 065
     Dates: start: 20100204
  5. AQUEOUS [Concomitant]
     Route: 061
     Dates: start: 20110509, end: 20110606
  6. FERROUS SULFATE TAB [Concomitant]
     Route: 065
     Dates: start: 20110616
  7. FORMOTEROL FUMARATE [Concomitant]
     Route: 065
     Dates: start: 20100205
  8. SYMBICORT [Concomitant]
     Route: 065
     Dates: start: 20110523, end: 20110524
  9. CETIRIZINE HCL [Concomitant]
     Route: 065
     Dates: start: 20110503, end: 20110517
  10. CETIRIZINE HCL [Concomitant]
     Route: 065
     Dates: start: 20110621, end: 20110721
  11. ERYTHROMYCIN [Concomitant]
     Route: 065
     Dates: start: 20110608, end: 20110615
  12. HYDROXYZINE HCL [Concomitant]
     Route: 065
     Dates: start: 20110616, end: 20110714
  13. SYMBICORT [Concomitant]
     Route: 065
     Dates: start: 20110621, end: 20110622

REACTIONS (2)
  - URINARY RETENTION [None]
  - ORAL PAIN [None]
